FAERS Safety Report 26046600 (Version 1)
Quarter: 2025Q4

REPORT INFORMATION
  Report Type: Spontaneous
  Country: US (occurrence: US)
  Receive Date: 20251114
  Receipt Date: 20251114
  Transmission Date: 20260118
  Serious: No
  Sender: OPTINOSE INC
  Company Number: US-OptiNose US, Inc-2025OPT000017

PATIENT
  Sex: Female

DRUGS (2)
  1. XHANCE [Suspect]
     Active Substance: FLUTICASONE PROPIONATE
     Indication: Ear congestion
     Dosage: 1 SPRAY AT BEDTIME INTO RIGHT NOSTRIL, 186 MICROGRAM, QD
     Route: 045
  2. DEVICE [Suspect]
     Active Substance: DEVICE
     Indication: Ear congestion
     Dosage: UNK UNK

REACTIONS (4)
  - Insomnia [Recovered/Resolved]
  - Off label use [Unknown]
  - Off label use [Unknown]
  - Product prescribing issue [Unknown]
